FAERS Safety Report 4449998-6 (Version None)
Quarter: 2004Q3

REPORT INFORMATION
  Report Type: 
  Country: None (occurrence: None)
  Receive Date: 20040915
  Receipt Date: 20040227
  Transmission Date: 20050211
  Serious: Yes (Hospitalization)
  Sender: FDA-Public Use
  Company Number: PHEH2004US02475

PATIENT
  Age: 49 Year
  Sex: Female

DRUGS (24)
  1. ZELNORM [Suspect]
     Indication: IRRITABLE BOWEL SYNDROME
     Dosage: 6 MG, QD
     Route: 048
     Dates: start: 20021120, end: 20040201
  2. DIOVAN [Concomitant]
     Dosage: 320 MG, QD
  3. FUROSEMIDE [Concomitant]
     Dosage: 40 MG, BID
  4. PERCOCET [Concomitant]
     Dosage: UNK, PRN
  5. ZOLOFT [Concomitant]
     Dosage: 100 MG, BID
  6. WELLBUTRIN [Concomitant]
     Dosage: 150 MG, BID
  7. ASTELIN [Concomitant]
  8. ULTRAM [Concomitant]
  9. BEXTRA [Concomitant]
     Dosage: 20 MG, QD
  10. FLEXERIL [Concomitant]
     Dosage: 10 MG, TID
  11. SOMA [Concomitant]
     Dosage: 350 MG, QD
  12. COMPAZINE [Concomitant]
     Dosage: 10 MG, BID
  13. PROVENTIL [Concomitant]
  14. SINGULAIR [Concomitant]
  15. PULMICORT [Concomitant]
  16. FLONASE [Concomitant]
  17. DUONEB [Concomitant]
  18. PREDNISONE [Concomitant]
  19. COLACE [Concomitant]
  20. TIAZAC [Concomitant]
     Dosage: 420 MG, QD
  21. PREVACID [Concomitant]
     Dosage: 30 MG, BID
  22. LEVSIN PB [Concomitant]
     Dosage: UNK, PRN
  23. MULTI-VITAMINS [Concomitant]
  24. AZITHROMYCIN [Concomitant]

REACTIONS (12)
  - ABDOMINAL PAIN [None]
  - ABDOMINAL PAIN LOWER [None]
  - CHEST PAIN [None]
  - COLECTOMY PARTIAL [None]
  - COLITIS ISCHAEMIC [None]
  - COLOSTOMY [None]
  - INTERSTITIAL LUNG DISEASE [None]
  - LAPAROTOMY [None]
  - PERITONITIS [None]
  - PNEUMOTHORAX [None]
  - SIGMOIDECTOMY [None]
  - THORACOTOMY [None]
